FAERS Safety Report 7057968-7 (Version None)
Quarter: 2010Q4

REPORT INFORMATION
  Report Type: 
  Country: None (occurrence: None)
  Receive Date: 20101022
  Receipt Date: 20101012
  Transmission Date: 20110411
  Serious: Yes (Other)
  Sender: FDA-Public Use
  Company Number: US-PFIZER INC-2010130280

PATIENT
  Sex: Female
  Weight: 98.41 kg

DRUGS (10)
  1. LYRICA [Suspect]
     Indication: FIBROMYALGIA
     Dosage: 50 MG, 2X/DAY
     Route: 048
     Dates: start: 20070101
  2. ACETYLSALICYLIC ACID [Concomitant]
     Dosage: 325 MG, UNK
  3. LASIX [Concomitant]
     Dosage: 40 MG, 2X/DAY
  4. POTASSIUM [Concomitant]
     Dosage: 10 MG, DAILY
  5. WARFARIN [Concomitant]
     Dosage: 2.5 MG, DAILY
  6. METOPROLOL [Concomitant]
     Dosage: 25 MG, 2X/DAY
  7. PACERONE [Concomitant]
     Dosage: 100 MG, 2X/DAY
  8. PLAVIX [Concomitant]
     Dosage: 75 MG, DAILY
  9. METFORMIN [Concomitant]
     Indication: DIABETES MELLITUS
     Dosage: 500 MG, DAILY
     Dates: start: 20080101
  10. INSULIN [Concomitant]
     Indication: DIABETES MELLITUS
     Dosage: UNK
     Dates: start: 20080101

REACTIONS (6)
  - ASTHENIA [None]
  - ATRIAL FIBRILLATION [None]
  - DRUG INEFFECTIVE [None]
  - FATIGUE [None]
  - MYOCARDIAL INFARCTION [None]
  - UNEVALUABLE EVENT [None]
